FAERS Safety Report 17871759 (Version 4)
Quarter: 2020Q2

REPORT INFORMATION
  Report Type: Report from Study
  Country: IN (occurrence: IN)
  Receive Date: 20200608
  Receipt Date: 20200623
  Transmission Date: 20200714
  Serious: Yes (Hospitalization)
  Sender: FDA-Public Use
  Company Number: NVSC2020IN098252

PATIENT
  Age: 60 Year
  Sex: Male
  Weight: 74.3 kg

DRUGS (5)
  1. GALVUS MET [Suspect]
     Active Substance: METFORMIN HYDROCHLORIDE\VILDAGLIPTIN
     Indication: DIABETES MELLITUS
     Dosage: UNK, BID (0-1-1)(PREMEAL) (METFORMIN 1000, VILDAGLIPTIN 50)
     Route: 048
     Dates: start: 2017
  2. GLYNASE [Concomitant]
     Active Substance: GLYBURIDE
     Indication: DIABETES MELLITUS
     Dosage: UNK, BID
     Route: 048
     Dates: start: 201704
  3. ASPIRIN. [Concomitant]
     Active Substance: ASPIRIN
     Indication: DIABETES MELLITUS
     Dosage: UNK UNK, QD (1-0-0)
     Route: 048
     Dates: start: 2017
  4. JARDIANCE [Concomitant]
     Active Substance: EMPAGLIFLOZIN
     Indication: DIABETES MELLITUS
     Dosage: UNK,QD
     Route: 048
     Dates: start: 201704
  5. PIZO [Concomitant]
     Indication: DIABETES MELLITUS
     Dosage: UNK
     Route: 048
     Dates: start: 201704

REACTIONS (5)
  - Hepatic steatosis [Unknown]
  - Overweight [Unknown]
  - Glycosylated haemoglobin increased [Unknown]
  - Postprandial hypoglycaemia [Unknown]
  - Hyperglycaemia [Unknown]

NARRATIVE: CASE EVENT DATE: 20200210
